FAERS Safety Report 16193981 (Version 1)
Quarter: 2019Q2

REPORT INFORMATION
  Report Type: Spontaneous
  Country: DE (occurrence: DE)
  Receive Date: 20190413
  Receipt Date: 20190413
  Transmission Date: 20190711
  Serious: Yes (Congenital Anomaly, Other)
  Sender: FDA-Public Use
  Company Number: PHHY2019DE080090

PATIENT
  Age: 1 Day
  Sex: Female
  Weight: 2.54 kg

DRUGS (7)
  1. EXFORGE HCT [Suspect]
     Active Substance: AMLODIPINE BESYLATE\HYDROCHLOROTHIAZIDE\VALSARTAN
     Indication: FOETAL EXPOSURE DURING PREGNANCY
     Dosage: MATERNAL DOSE: 160 MG, QD
     Route: 064
  2. CLEXANE [Concomitant]
     Active Substance: ENOXAPARIN SODIUM
     Indication: FOETAL EXPOSURE DURING PREGNANCY
     Dosage: MATERNAL DOSE: 40 MG, QD
     Route: 064
     Dates: start: 20180801, end: 20180812
  3. NITRODERM [Concomitant]
     Active Substance: NITROGLYCERIN
     Indication: FOETAL EXPOSURE DURING PREGNANCY
     Dosage: MATERNAL DOSE: 20 MG, QD
     Route: 064
     Dates: start: 20180801, end: 20180802
  4. CEFOTAXIME [Concomitant]
     Active Substance: CEFOTAXIME SODIUM
     Indication: FOETAL EXPOSURE DURING PREGNANCY
     Dosage: MATERNAL DOSE: 4000 MG, QD
     Route: 064
     Dates: start: 20180801, end: 20180807
  5. GYNOFLOR [Concomitant]
     Indication: FOETAL EXPOSURE DURING PREGNANCY
     Dosage: MATERNAL DOSE: UNK
     Route: 064
  6. AMPICILLIN [Concomitant]
     Active Substance: AMPICILLIN
     Indication: FOETAL EXPOSURE DURING PREGNANCY
     Dosage: MATERNAL DOSE: 6000 MG, QD
     Route: 064
     Dates: start: 20180801, end: 20180807
  7. CELESTAN [Concomitant]
     Active Substance: BETAMETHASONE
     Indication: FOETAL EXPOSURE DURING PREGNANCY
     Dosage: MATERNAL DOSE: 12 MG, QD
     Route: 064
     Dates: start: 20180801, end: 20180802

REACTIONS (14)
  - Pulmonary hypoplasia [Recovered/Resolved]
  - Selective eating disorder [Recovered/Resolved]
  - Foot deformity [Not Recovered/Not Resolved]
  - Pulmonary hypertension [Recovered/Resolved]
  - Secondary hypertension [Not Recovered/Not Resolved]
  - Hypocalvaria [Not Recovered/Not Resolved]
  - Patent ductus arteriosus [Recovered/Resolved]
  - Congenital tricuspid valve incompetence [Recovered/Resolved]
  - Respiratory failure [Recovered/Resolved]
  - Foetal exposure during pregnancy [Unknown]
  - Atrial septal defect [Recovering/Resolving]
  - Renal aplasia [Not Recovered/Not Resolved]
  - Dysmorphism [Unknown]
  - Joint contracture [Not Recovered/Not Resolved]

NARRATIVE: CASE EVENT DATE: 20180907
